FAERS Safety Report 5282909-2 (Version None)
Quarter: 2007Q1

REPORT INFORMATION
  Report Type: 
  Country: None (occurrence: None)
  Receive Date: 20070328
  Receipt Date: 20070328
  Transmission Date: 20070707
  Serious: Yes (Disabling)
  Sender: FDA-Public Use
  Company Number: None

PATIENT
  Sex: Male
  Weight: 84.8226 kg

DRUGS (1)
  1. STARLIX [Suspect]
     Indication: DIABETES MELLITUS
     Dosage: 120 MG 1 WITH EACH MEAL
     Dates: start: 20061120, end: 20070316

REACTIONS (4)
  - ARTERIAL OCCLUSIVE DISEASE [None]
  - BLOOD GLUCOSE INCREASED [None]
  - PAIN IN EXTREMITY [None]
  - PERIPHERAL VASCULAR DISORDER [None]
